FAERS Safety Report 5212776-4 (Version None)
Quarter: 2007Q1

REPORT INFORMATION
  Report Type: 
  Country: None (occurrence: None)
  Receive Date: 20070119
  Receipt Date: 20070112
  Transmission Date: 20070707
  Serious: Yes (Other)
  Sender: FDA-Public Use
  Company Number: US-JNJFOC-20070102988

PATIENT
  Sex: Female
  Weight: 88 kg

DRUGS (7)
  1. REMICADE [Suspect]
     Indication: CROHN'S DISEASE
     Route: 042
  2. ENTOCORT [Concomitant]
  3. 6-MP [Concomitant]
  4. CELEXA [Concomitant]
  5. FISH OIL [Concomitant]
  6. TYLENOL [Concomitant]
  7. METRONIDAZOLE [Concomitant]

REACTIONS (4)
  - MIGRAINE [None]
  - MUSCULAR WEAKNESS [None]
  - SENSORY DISTURBANCE [None]
  - VISUAL DISTURBANCE [None]
